FAERS Safety Report 24565622 (Version 1)
Quarter: 2024Q4

REPORT INFORMATION
  Report Type: Spontaneous
  Country: US (occurrence: US)
  Receive Date: 20241030
  Receipt Date: 20241030
  Transmission Date: 20250115
  Serious: No
  Sender: BAYER HEALTHCARE PHARMACEUTICALS INC.
  Company Number: US-BAYER-2024A151446

PATIENT
  Age: 84 Year
  Sex: Female

DRUGS (1)
  1. KERENDIA [Suspect]
     Active Substance: FINERENONE
     Dosage: 10 MG
     Route: 048
     Dates: start: 20240812, end: 20241001

REACTIONS (4)
  - Dizziness [None]
  - Asthenia [None]
  - Gait disturbance [None]
  - Palpitations [None]
